FAERS Safety Report 23562024 (Version 1)
Quarter: 2024Q1

REPORT INFORMATION
  Report Type: Spontaneous
  Country: CN (occurrence: CN)
  Receive Date: 20240226
  Receipt Date: 20240226
  Transmission Date: 20240409
  Serious: Yes (Hospitalization, Other)
  Sender: FDA-Public Use
  Company Number: CN-PDX-000306

PATIENT
  Age: 3 Year
  Sex: Female

DRUGS (1)
  1. METOPROLOL [Suspect]
     Active Substance: METOPROLOL
     Indication: Hypertrophic cardiomyopathy
     Route: 048

REACTIONS (4)
  - Drug ineffective for unapproved indication [Unknown]
  - Hypertrophic cardiomyopathy [Recovered/Resolved]
  - Cardiac disorder [Recovered/Resolved]
  - Product use issue [Unknown]
